FAERS Safety Report 9371652 (Version 1)
Quarter: 2013Q2

REPORT INFORMATION
  Report Type: Spontaneous
  Country: US (occurrence: None)
  Receive Date: 20130626
  Receipt Date: 20130626
  Transmission Date: 20140414
  Serious: Yes (Other)
  Sender: FDA-Public Use
  Company Number: None

PATIENT
  Sex: Female

DRUGS (1)
  1. REMICADE [Suspect]
     Dosage: 263 MG EVERY 8 WEEKS  IV
     Route: 042
     Dates: start: 20120320, end: 20121001

REACTIONS (1)
  - Renal failure chronic [None]
